FAERS Safety Report 10669905 (Version 4)
Quarter: 2015Q2

REPORT INFORMATION
  Report Type: Report from Study
  Country: AU (occurrence: AU)
  Receive Date: 20141222
  Receipt Date: 20150417
  Transmission Date: 20150821
  Serious: Yes (Other)
  Sender: FDA-Public Use
  Company Number: AU-ROCHE-1512761

PATIENT
  Age: 61 Year
  Sex: Female

DRUGS (4)
  1. TRANSIDERM NITRO [Concomitant]
     Indication: CORONARY ARTERY DISEASE
     Dosage: FOR 12 HOURS
     Route: 065
     Dates: start: 20150414
  2. ACTEMRA [Suspect]
     Active Substance: TOCILIZUMAB
     Route: 042
     Dates: start: 20150204
  3. ACTEMRA [Suspect]
     Active Substance: TOCILIZUMAB
     Indication: RHEUMATOID ARTHRITIS
     Route: 042
     Dates: start: 20100514
  4. BICOR (AUSTRALIA) [Concomitant]
     Indication: CORONARY ARTERY DISEASE
     Route: 048
     Dates: start: 20150122

REACTIONS (3)
  - Cardiomyopathy [Unknown]
  - Bundle branch block left [Unknown]
  - Cardiac disorder [Unknown]

NARRATIVE: CASE EVENT DATE: 20141216
